FAERS Safety Report 22399774 (Version 1)
Quarter: 2023Q2

REPORT INFORMATION
  Report Type: Spontaneous
  Country: KR (occurrence: KR)
  Receive Date: 20230602
  Receipt Date: 20230602
  Transmission Date: 20230722
  Serious: Yes (Hospitalization, Other)
  Sender: FDA-Public Use
  Company Number: KR-PFIZER INC-PV202300096532

PATIENT
  Age: 80 Year
  Sex: Male

DRUGS (4)
  1. PAXLOVID [Suspect]
     Active Substance: NIRMATRELVIR\RITONAVIR
     Indication: COVID-19 treatment
     Dosage: UNK
     Route: 048
     Dates: start: 202305, end: 202305
  2. ACETAMINOPHEN [Concomitant]
     Active Substance: ACETAMINOPHEN
     Dosage: UNK
  3. COUGH SYRUP [AMMONIUM CHLORIDE;CHLORPHENAMINE MALEATE;DIHYDROCODEINE B [Concomitant]
     Dosage: UNK
  4. ERDOSTEINE [Concomitant]
     Active Substance: ERDOSTEINE
     Dosage: UNK

REACTIONS (3)
  - Acute kidney injury [Unknown]
  - Small intestinal obstruction [Unknown]
  - Acidosis [Unknown]

NARRATIVE: CASE EVENT DATE: 20230501
